FAERS Safety Report 9695067 (Version 1)
Quarter: 2013Q4

REPORT INFORMATION
  Report Type: Report from Study
  Country: MX (occurrence: MX)
  Receive Date: 20131119
  Receipt Date: 20131119
  Transmission Date: 20140711
  Serious: Yes (Other)
  Sender: FDA-Public Use
  Company Number: PHHY2013MX131171

PATIENT
  Age: 47 Year
  Sex: Female

DRUGS (5)
  1. GILENYA [Suspect]
     Indication: MULTIPLE SCLEROSIS
     Dosage: 0.5 MG, QD
     Route: 048
     Dates: start: 201307, end: 201310
  2. ATEMPERATOR                             /CHL/ [Concomitant]
     Dates: start: 1998
  3. LEVETIRACETAM [Concomitant]
     Indication: EPILEPSY
     Dates: start: 2003
  4. VIT. E [Concomitant]
     Dates: start: 2010
  5. OMEGA DAILY [Concomitant]
     Dates: start: 2010

REACTIONS (2)
  - Epistaxis [Recovered/Resolved]
  - Gingival bleeding [Recovered/Resolved]
